FAERS Safety Report 12144367 (Version 1)
Quarter: 2016Q1

REPORT INFORMATION
  Report Type: Spontaneous
  Country: US (occurrence: None)
  Receive Date: 20160303
  Receipt Date: 20160303
  Transmission Date: 20160526
  Serious: No
  Sender: FDA-Public Use
  Company Number: None

PATIENT
  Age: 37 Year
  Sex: Male

DRUGS (1)
  1. HUMIRA [Suspect]
     Active Substance: ADALIMUMAB
     Dosage: INJECTABLE?EVERY OTHER WEEK
     Route: 058
     Dates: start: 20160215

REACTIONS (3)
  - Back pain [None]
  - Arthralgia [None]
  - Pneumonia [None]

NARRATIVE: CASE EVENT DATE: 20160219
